FAERS Safety Report 10197466 (Version 1)
Quarter: 2014Q2

REPORT INFORMATION
  Report Type: Spontaneous
  Country: US (occurrence: US)
  Receive Date: 20140527
  Receipt Date: 20140527
  Transmission Date: 20141212
  Serious: No
  Sender: FDA-Public Use
  Company Number: US-NOVEN-14US008784

PATIENT
  Sex: Female

DRUGS (2)
  1. MINIVELLE [Suspect]
     Indication: NIGHT SWEATS
     Dosage: 0.1 MG/DAY, Q3DAYS
     Route: 062
     Dates: start: 201401, end: 201401
  2. MINIVELLE [Suspect]
     Indication: HOT FLUSH

REACTIONS (4)
  - Application site vesicles [Recovered/Resolved]
  - Application site pain [Recovered/Resolved]
  - Application site rash [Recovered/Resolved]
  - Drug hypersensitivity [Recovered/Resolved]
